FAERS Safety Report 8363536-7 (Version None)
Quarter: 2012Q2

REPORT INFORMATION
  Report Type: 
  Country: None (occurrence: None)
  Receive Date: 20120516
  Receipt Date: 20120511
  Transmission Date: 20120825
  Serious: Yes (Hospitalization, Other)
  Sender: FDA-Public Use
  Company Number: PHHY2012CA040039

PATIENT
  Sex: Female

DRUGS (5)
  1. CLONAZEPAM [Concomitant]
     Dosage: 0.5 MG, BID
     Route: 048
  2. CLOZARIL [Suspect]
     Indication: SCHIZOPHRENIA
     Dosage: 450 MG, DAILY
     Route: 048
     Dates: start: 20020806
  3. RISPERIDONE [Concomitant]
     Dosage: 3 MG, QHS
     Route: 048
  4. CLOZARIL [Suspect]
     Dosage: 1100 MG, UNK
     Route: 048
     Dates: start: 20120509
  5. VALPROIC ACID [Concomitant]
     Dosage: 1000 MG AT NOON AND 250 MG QHS
     Route: 048

REACTIONS (1)
  - INTENTIONAL OVERDOSE [None]
